FAERS Safety Report 12881430 (Version 3)
Quarter: 2017Q2

REPORT INFORMATION
  Report Type: Spontaneous
  Country: US (occurrence: US)
  Receive Date: 20161025
  Receipt Date: 20170630
  Transmission Date: 20170830
  Serious: No
  Sender: FDA-Public Use
  Company Number: US-JNJFOC-20161011999

PATIENT
  Age: 10 Year
  Sex: Male

DRUGS (5)
  1. RISPERDAL [Suspect]
     Active Substance: RISPERIDONE
     Indication: ANXIETY
     Dosage: 0.25 MG TO 1 MG
     Route: 048
     Dates: start: 20020815, end: 2013
  2. RISPERIDONE. [Suspect]
     Active Substance: RISPERIDONE
     Indication: PRODUCT USED FOR UNKNOWN INDICATION
     Route: 048
  3. RISPERDAL [Suspect]
     Active Substance: RISPERIDONE
     Indication: CONDUCT DISORDER
     Dosage: 0.25 MG TO 1 MG
     Route: 048
     Dates: start: 20020815, end: 2013
  4. RISPERDAL [Suspect]
     Active Substance: RISPERIDONE
     Indication: DEPRESSION
     Dosage: 0.25 MG TO 1 MG
     Route: 048
     Dates: start: 20020815, end: 2013
  5. RISPERDAL [Suspect]
     Active Substance: RISPERIDONE
     Indication: SCHIZOAFFECTIVE DISORDER
     Dosage: 0.25 MG TO 1 MG
     Route: 048
     Dates: start: 20020815, end: 2013

REACTIONS (4)
  - Gynaecomastia [Unknown]
  - Fatigue [Unknown]
  - Abnormal weight gain [Unknown]
  - Chest pain [Unknown]

NARRATIVE: CASE EVENT DATE: 200210
